FAERS Safety Report 22111525 (Version 1)
Quarter: 2023Q1

REPORT INFORMATION
  Report Type: Spontaneous
  Country: CN (occurrence: CN)
  Receive Date: 20230318
  Receipt Date: 20230318
  Transmission Date: 20230417
  Serious: Yes (Other)
  Sender: FDA-Public Use
  Company Number: CN-AUROBINDO-AUR-APL-2023-011747

PATIENT
  Age: 44 Year
  Sex: Male

DRUGS (2)
  1. MIRTAZAPINE [Suspect]
     Active Substance: MIRTAZAPINE
     Indication: Catatonia
     Dosage: UNK
     Route: 065
  2. PAROXETINE [Suspect]
     Active Substance: PAROXETINE
     Indication: Catatonia
     Dosage: UNK
     Route: 065

REACTIONS (7)
  - Encephalitis autoimmune [Unknown]
  - Gaze palsy [Unknown]
  - Parkinsonism [Unknown]
  - Depression [Unknown]
  - Cogwheel rigidity [Unknown]
  - Tremor [Unknown]
  - Bradykinesia [Unknown]
